FAERS Safety Report 4643753-X (Version None)
Quarter: 2005Q2

REPORT INFORMATION
  Report Type: 
  Country: None (occurrence: None)
  Receive Date: 20050425
  Receipt Date: 20050415
  Transmission Date: 20051028
  Serious: Yes (Other)
  Sender: FDA-Public Use
  Company Number: PHBS2005CZ05460

PATIENT
  Age: 71 Year
  Sex: Male

DRUGS (6)
  1. LESCOL XL [Suspect]
     Indication: HYPERCHOLESTEROLAEMIA
     Dosage: 80 MG/DAY
     Dates: start: 20050223, end: 20050301
  2. TENOLOC [Concomitant]
     Dosage: 100 MG/DAY
  3. RYTHMOL [Concomitant]
     Dosage: 450 MG/DAY
  4. ANOPYRIN [Concomitant]
     Dosage: 100 MG/DAY
  5. RENPRESS [Concomitant]
     Dosage: 6 MG/DAY
  6. APO-TICLOPIDINE [Concomitant]
     Dates: start: 20050222

REACTIONS (7)
  - ASTHENIA [None]
  - BLOOD CREATINE PHOSPHOKINASE INCREASED [None]
  - BLOOD CREATINE PHOSPHOKINASE MB [None]
  - FALL [None]
  - MYALGIA [None]
  - MYOGLOBIN BLOOD INCREASED [None]
  - VERTIGO [None]
